FAERS Safety Report 8506015-6 (Version None)
Quarter: 2012Q3

REPORT INFORMATION
  Report Type: 
  Country: None (occurrence: None)
  Receive Date: 20120712
  Receipt Date: 20120703
  Transmission Date: 20120928
  Serious: Yes (Death, Hospitalization, Other)
  Sender: FDA-Public Use
  Company Number: US-009507513-2012SP011827

PATIENT

DRUGS (1)
  1. NUVARING [Suspect]
     Indication: CONTRACEPTION
     Dates: start: 20070623, end: 20100310

REACTIONS (12)
  - LUNG DISORDER [None]
  - UPPER RESPIRATORY TRACT INFECTION [None]
  - COSTOCHONDRITIS [None]
  - BRONCHITIS [None]
  - PAIN [None]
  - PULMONARY EMBOLISM [None]
  - TENDONITIS [None]
  - PHARYNGITIS [None]
  - DEEP VEIN THROMBOSIS [None]
  - ANXIETY [None]
  - MALAISE [None]
  - CARPAL TUNNEL SYNDROME [None]
